FAERS Safety Report 5515267-6 (Version None)
Quarter: 2007Q4

REPORT INFORMATION
  Report Type: 
  Country: None (occurrence: None)
  Receive Date: 20071113
  Receipt Date: 20071107
  Transmission Date: 20080405
  Serious: Yes (Hospitalization)
  Sender: FDA-Public Use
  Company Number: DE-MERCK-0710DEU00363

PATIENT
  Age: 71 Year
  Sex: Male
  Weight: 85 kg

DRUGS (6)
  1. CANCIDAS [Suspect]
     Indication: CANDIDIASIS
     Route: 042
     Dates: start: 20071006, end: 20071010
  2. CORDAREX [Suspect]
     Indication: ATRIAL FIBRILLATION
     Route: 065
     Dates: start: 20070401, end: 20070901
  3. PRIMAXIN [Suspect]
     Indication: PNEUMONIA
     Route: 042
     Dates: start: 20071001, end: 20071005
  4. PRIMAXIN [Suspect]
     Route: 042
     Dates: start: 20071019, end: 20071024
  5. FORTUM [Suspect]
     Indication: PNEUMONIA
     Route: 065
     Dates: start: 20071005, end: 20071019
  6. AVELOX [Suspect]
     Indication: PNEUMONIA
     Route: 065
     Dates: start: 20071004, end: 20071018

REACTIONS (6)
  - ALANINE AMINOTRANSFERASE INCREASED [None]
  - ASPARTATE AMINOTRANSFERASE INCREASED [None]
  - BLOOD ALKALINE PHOSPHATASE INCREASED [None]
  - BLOOD BILIRUBIN INCREASED [None]
  - GAMMA-GLUTAMYLTRANSFERASE INCREASED [None]
  - HEPATIC FAILURE [None]
